FAERS Safety Report 10689387 (Version 1)
Quarter: 2015Q1

REPORT INFORMATION
  Report Type: Spontaneous
  Country: US (occurrence: US)
  Receive Date: 20150105
  Receipt Date: 20150105
  Transmission Date: 20150720
  Serious: Yes (Other)
  Sender: FDA-Public Use
  Company Number: US-JNJFOC-20141218809

PATIENT
  Age: 2 Year
  Sex: Female
  Weight: 10.89 kg

DRUGS (3)
  1. FLINSTONES MULTIVITAMIN [Concomitant]
     Indication: MALABSORPTION
     Route: 065
  2. CHILDRENS BENADRYL ALLERGY CHERRY FLAVORED [Suspect]
     Active Substance: DIPHENHYDRAMINE HYDROCHLORIDE
     Indication: FOOD ALLERGY
     Route: 048
     Dates: start: 20141214
  3. ORAJEL [Concomitant]
     Active Substance: ALLANTOIN\BENZOCAINE\CAMPHOR (NATURAL)\DIMETHICONE\MENTHOL
     Indication: TOOTHACHE
     Route: 065

REACTIONS (2)
  - Vomiting [Recovered/Resolved]
  - Hypersensitivity [Recovered/Resolved]

NARRATIVE: CASE EVENT DATE: 20141214
